FAERS Safety Report 14310866 (Version 3)
Quarter: 2017Q4

REPORT INFORMATION
  Report Type: Report from Study
  Country: None (occurrence: ES)
  Receive Date: 20171221
  Receipt Date: 20171229
  Transmission Date: 20180321
  Serious: Yes (Death, Hospitalization, Other)
  Sender: FDA-Public Use
  Company Number: ES-ABBVIE-17K-144-2199850-00

PATIENT
  Age: 77 Year
  Sex: Male

DRUGS (3)
  1. DUODOPA [Suspect]
     Active Substance: CARBIDOPA\LEVODOPA
     Indication: PARKINSON^S DISEASE
     Route: 050
     Dates: start: 20170118, end: 201711
  2. XARELTO [Suspect]
     Active Substance: RIVAROXABAN
     Indication: PRODUCT USED FOR UNKNOWN INDICATION
     Route: 065
     Dates: start: 201707, end: 201711
  3. ELIQUIS [Suspect]
     Active Substance: APIXABAN
     Indication: PRODUCT USED FOR UNKNOWN INDICATION
     Route: 065
     Dates: start: 201711, end: 201712

REACTIONS (9)
  - Asthenia [Not Recovered/Not Resolved]
  - Anaemia [Not Recovered/Not Resolved]
  - Agitation [Unknown]
  - Cardiomyopathy [Fatal]
  - Hallucination [Unknown]
  - Cognitive disorder [Not Recovered/Not Resolved]
  - General physical health deterioration [Unknown]
  - Gait disturbance [Not Recovered/Not Resolved]
  - Bladder diverticulum [Unknown]

NARRATIVE: CASE EVENT DATE: 2017
